FAERS Safety Report 5579633-5 (Version None)
Quarter: 2008Q1

REPORT INFORMATION
  Report Type: 
  Country: None (occurrence: None)
  Receive Date: 20080102
  Receipt Date: 20071227
  Transmission Date: 20080703
  Serious: Yes (Other)
  Sender: FDA-Public Use
  Company Number: DE-BOEHRINGER INGELHEIM PHARMACEUTICALS, INC.-2007-DE-07223DE

PATIENT
  Sex: Female
  Weight: 64 kg

DRUGS (4)
  1. SIFROL 0,18 MG [Suspect]
     Indication: RESTLESS LEGS SYNDROME
     Route: 048
     Dates: start: 20070921, end: 20071012
  2. RAMIPRIL [Concomitant]
     Route: 048
  3. L-THYROXIN [Concomitant]
     Route: 048
  4. AMLODIPINE [Concomitant]
     Route: 048

REACTIONS (5)
  - ANXIETY [None]
  - NIGHTMARE [None]
  - PANIC ATTACK [None]
  - RESTLESSNESS [None]
  - SCHIZOPHRENIFORM DISORDER [None]
